FAERS Safety Report 13904488 (Version 2)
Quarter: 2018Q3

REPORT INFORMATION
  Report Type: Report from Study
  Country: US (occurrence: US)
  Receive Date: 20170825
  Receipt Date: 20180910
  Transmission Date: 20181010
  Serious: Yes (Other)
  Sender: FDA-Public Use
  Company Number: US-ROCHE-1982604

PATIENT

DRUGS (2)
  1. RITUXIMAB. [Suspect]
     Active Substance: RITUXIMAB
     Indication: MANTLE CELL LYMPHOMA
     Route: 065
  2. IBRUTINIB [Suspect]
     Active Substance: IBRUTINIB
     Indication: MANTLE CELL LYMPHOMA
     Route: 065

REACTIONS (7)
  - Diarrhoea [Unknown]
  - Hepatic infection [Unknown]
  - Colitis [Unknown]
  - Pneumonia [Unknown]
  - Oesophageal carcinoma [Unknown]
  - Atrial fibrillation [Unknown]
  - Haemorrhage [Unknown]
